FAERS Safety Report 8006932-X (Version None)
Quarter: 2011Q4

REPORT INFORMATION
  Report Type: 
  Country: None (occurrence: None)
  Receive Date: 20111227
  Receipt Date: 20111221
  Transmission Date: 20120403
  Serious: Yes (Other)
  Sender: FDA-Public Use
  Company Number: US-JNJFOC-20111209639

PATIENT
  Sex: Female

DRUGS (2)
  1. NUCYNTA ER [Suspect]
     Indication: PAIN
     Dosage: 50MG/ 2 IN ONE DAY
     Route: 048
     Dates: start: 20110101, end: 20110101
  2. HYDROCHLOROTHIAZIDE [Concomitant]
     Indication: HYPERTENSION
     Route: 048

REACTIONS (1)
  - BLOOD PRESSURE SYSTOLIC INCREASED [None]
